FAERS Safety Report 8811169 (Version 1)
Quarter: 2012Q4

REPORT INFORMATION
  Report Type: 
  Country: US (occurrence: US)
  Receive Date: 20120927
  Receipt Date: 20120927
  Transmission Date: 20130627
  Serious: Yes (Hospitalization)
  Sender: FDA-Public Use
  Company Number: US-BAYER-2012-099922

PATIENT
  Age: 22 Year
  Sex: Female

DRUGS (3)
  1. YASMIN [Suspect]
  2. OXYCODONE [Concomitant]
     Dosage: 20 mg, q12h
  3. VICODIN [Concomitant]
     Indication: PAIN
     Dosage: one to two every four hours as needed

REACTIONS (1)
  - Pulmonary embolism [None]
